FAERS Safety Report 25121746 (Version 1)
Quarter: 2025Q1

REPORT INFORMATION
  Report Type: Report from Study
  Country: FR (occurrence: FR)
  Receive Date: 20250326
  Receipt Date: 20250326
  Transmission Date: 20250409
  Serious: Yes (Other)
  Sender: TEVA
  Company Number: FR-TEVA-VS-3311816

PATIENT
  Age: 31 Year
  Sex: Female

DRUGS (3)
  1. URSODIOL [Suspect]
     Active Substance: URSODIOL
     Indication: Cholelithiasis
     Route: 065
  2. BEZAFIBRATE [Suspect]
     Active Substance: BEZAFIBRATE
     Indication: Cholelithiasis
     Route: 065
  3. EZETIMIBE [Suspect]
     Active Substance: EZETIMIBE
     Indication: Cholelithiasis
     Route: 065

REACTIONS (3)
  - Anaphylactic reaction [Unknown]
  - Drug ineffective [Unknown]
  - Urticaria [Unknown]
